FAERS Safety Report 10088961 (Version 1)
Quarter: 2014Q2

REPORT INFORMATION
  Report Type: Spontaneous
  Country: US (occurrence: None)
  Receive Date: 20140418
  Receipt Date: 20140418
  Transmission Date: 20141212
  Serious: No
  Sender: FDA-Public Use
  Company Number: None

PATIENT
  Sex: Female
  Weight: 86.18 kg

DRUGS (9)
  1. MAGNESIUM [Concomitant]
  2. TROKENDI XR [Suspect]
     Indication: INCREASED APPETITE
     Dosage: 2 - 25MG CAPSULES  50MG IN MORNING  ORALLY
     Route: 048
     Dates: start: 20140326, end: 20140329
  3. LEVOTHYROXINE [Concomitant]
  4. MELOXICAM [Concomitant]
  5. OMEPRAZOLE [Concomitant]
  6. VITAMIN [Concomitant]
  7. CALCIUM [Concomitant]
  8. FISH OIL [Concomitant]
  9. BABY ASPIRIN [Concomitant]

REACTIONS (9)
  - Thinking abnormal [None]
  - No therapeutic response [None]
  - Anxiety [None]
  - Aphasia [None]
  - Disturbance in attention [None]
  - Confusional state [None]
  - Memory impairment [None]
  - Emotional disorder [None]
  - Mental disorder [None]
